FAERS Safety Report 7048431-8 (Version None)
Quarter: 2010Q4

REPORT INFORMATION
  Report Type: 
  Country: None (occurrence: None)
  Receive Date: 20101015
  Receipt Date: 20101012
  Transmission Date: 20110411
  Serious: Yes (Life-Threatening)
  Sender: FDA-Public Use
  Company Number: NL-MERCK-1010NLD00007

PATIENT
  Age: 66 Year
  Sex: Female

DRUGS (1)
  1. JANUVIA [Suspect]
     Indication: DIABETES MELLITUS
     Route: 048
     Dates: start: 20070928, end: 20100517

REACTIONS (3)
  - DYSPNOEA [None]
  - SUFFOCATION FEELING [None]
  - UPPER RESPIRATORY TRACT INFECTION [None]
